FAERS Safety Report 9165196 (Version 1)
Quarter: 2013Q1

REPORT INFORMATION
  Report Type: Spontaneous
  Country: JP (occurrence: None)
  Receive Date: 20130227
  Receipt Date: 20130227
  Transmission Date: 20140127
  Serious: Yes (Hospitalization)
  Sender: FDA-Public Use
  Company Number: INT_00218_2013

PATIENT
  Age: 72 Year
  Sex: Female

DRUGS (1)
  1. CEFTRIAXONE [Suspect]
     Indication: DEVICE RELATED INFECTION
     Route: 042

REACTIONS (6)
  - Depressed level of consciousness [None]
  - Lethargy [None]
  - Dyskinesia [None]
  - Choreoathetosis [None]
  - Electroencephalogram abnormal [None]
  - Cerebral disorder [None]
